FAERS Safety Report 20717869 (Version 1)
Quarter: 2022Q2

REPORT INFORMATION
  Report Type: Spontaneous
  Country: US (occurrence: US)
  Receive Date: 20220418
  Receipt Date: 20220418
  Transmission Date: 20220721
  Serious: No
  Sender: FDA-Public Use
  Company Number: US-BRISTOL-MYERS SQUIBB COMPANY-2022-016159

PATIENT
  Age: 50 Year
  Sex: Female
  Weight: 90.72 kg

DRUGS (2)
  1. ORENCIA [Suspect]
     Active Substance: ABATACEPT
     Indication: Arthritis
     Dosage: DOSE : 8;     FREQ : ONCE A WEEK
     Route: 058
     Dates: start: 20220205
  2. ORENCIA [Suspect]
     Active Substance: ABATACEPT
     Indication: Rheumatoid arthritis
     Dosage: DOSE : UNAVAILABLE;     FREQ : WEEKLY
     Route: 058
     Dates: start: 20220303

REACTIONS (3)
  - Device defective [Unknown]
  - Device leakage [Unknown]
  - Injection site haemorrhage [Unknown]

NARRATIVE: CASE EVENT DATE: 20220326
